FAERS Safety Report 9800414 (Version 1)
Quarter: 2014Q1

REPORT INFORMATION
  Report Type: Report from Study
  Country: US (occurrence: US)
  Receive Date: 20140107
  Receipt Date: 20140107
  Transmission Date: 20141002
  Serious: Yes (Hospitalization)
  Sender: FDA-Public Use
  Company Number: US-ROCHE-1323608

PATIENT
  Sex: Female
  Weight: 54.48 kg

DRUGS (10)
  1. BONIVA [Suspect]
     Indication: SENILE OSTEOPOROSIS
     Route: 048
  2. SYNTHROID [Concomitant]
     Dosage: 100 MCG
     Route: 065
  3. LISINOPRIL [Concomitant]
     Route: 065
  4. LISINOPRIL [Concomitant]
     Route: 065
  5. TOPROL XL [Concomitant]
     Route: 065
  6. COUMADIN [Concomitant]
     Dosage: AS ADJUSTED BY CARDIOLOGIST
     Route: 065
  7. TEMAZEPAM [Concomitant]
     Dosage: Q H S
     Route: 065
  8. XANAX [Concomitant]
     Route: 065
  9. DIGOXIN [Concomitant]
     Route: 065
  10. PROTONIX (UNITED STATES) [Concomitant]

REACTIONS (6)
  - Gastroenteritis [Unknown]
  - Urinary tract infection [Unknown]
  - Diarrhoea [Unknown]
  - Psychotic disorder [Unknown]
  - Prothrombin time prolonged [Unknown]
  - Electrolyte imbalance [Unknown]
